FAERS Safety Report 6324783-9 (Version None)
Quarter: 2009Q3

REPORT INFORMATION
  Report Type: 
  Country: None (occurrence: None)
  Receive Date: 20090824
  Receipt Date: 20090505
  Transmission Date: 20100115
  Serious: No
  Sender: FDA-Public Use
  Company Number: US-ABBOTT-09P-163-0571623-00

PATIENT
  Sex: Male
  Weight: 81.72 kg

DRUGS (21)
  1. NIASPAN [Suspect]
     Indication: BLOOD CHOLESTEROL INCREASED
     Dates: start: 20070101
  2. NIASPAN [Suspect]
     Indication: HYPERLIPIDAEMIA
     Dates: end: 20090301
  3. NIASPAN [Suspect]
     Dates: start: 20090301
  4. ZETIA [Concomitant]
     Indication: BLOOD CHOLESTEROL INCREASED
  5. SIMVASTATIN [Concomitant]
     Indication: BLOOD CHOLESTEROL INCREASED
  6. FEXOFENADINE [Concomitant]
     Indication: HYPERSENSITIVITY
     Dosage: DURING SPRING AND FALL SEASONS
  7. SINGULAIR [Concomitant]
     Indication: HYPERSENSITIVITY
  8. PLAVIX [Concomitant]
     Indication: MYOCARDIAL INFARCTION
  9. TOPROL-XL [Concomitant]
     Indication: HYPERTENSION
  10. ASPIRIN [Concomitant]
     Indication: MYOCARDIAL INFARCTION
  11. TRIAMTERENE AND HYDROCHLOROTHIAZIDE [Concomitant]
     Indication: NEPHROLITHIASIS
     Dosage: 37.5/25 MG TWICE DAILY
  12. TRIAMTERENE AND HYDROCHLOROTHIAZIDE [Concomitant]
     Indication: PROPHYLAXIS
  13. UROCIT-K [Concomitant]
     Indication: BLOOD POTASSIUM DECREASED
  14. KLOR-CON [Concomitant]
     Indication: BLOOD POTASSIUM DECREASED
  15. LEVOTHYROXINE SODIUM [Concomitant]
     Indication: METABOLIC SYNDROME
  16. ADVAIR HFA [Concomitant]
     Indication: ASTHMA
     Dosage: 500/50 FORM STRENGTH
  17. ALBUTEROL [Concomitant]
     Indication: ASTHMA
  18. MUCINEX [Concomitant]
     Indication: RESPIRATORY TRACT CONGESTION
  19. TYLENOL (CAPLET) [Concomitant]
     Indication: DRUG USE FOR UNKNOWN INDICATION
  20. FAMOTIDINE [Concomitant]
     Indication: GASTROOESOPHAGEAL REFLUX DISEASE
  21. VITAMIN D [Concomitant]
     Indication: METABOLIC SYNDROME

REACTIONS (4)
  - FEELING HOT [None]
  - FLUSHING [None]
  - INFLUENZA LIKE ILLNESS [None]
  - PRURITUS [None]
